FAERS Safety Report 8272529-X (Version None)
Quarter: 2012Q2

REPORT INFORMATION
  Report Type: 
  Country: None (occurrence: None)
  Receive Date: 20120410
  Receipt Date: 20120404
  Transmission Date: 20120825
  Serious: Yes (Other)
  Sender: FDA-Public Use
  Company Number: CA-ROCHE-GNE296438

PATIENT
  Sex: Male

DRUGS (8)
  1. ALVESCO [Concomitant]
     Indication: PRODUCT USED FOR UNKNOWN INDICATION
  2. INFLUENZA VACCINE [Concomitant]
     Indication: PRODUCT USED FOR UNKNOWN INDICATION
  3. XOLAIR [Suspect]
     Dosage: 225 MG, Q2W
     Route: 058
     Dates: start: 20091221
  4. SALMETEROL [Concomitant]
     Indication: PRODUCT USED FOR UNKNOWN INDICATION
  5. XOLAIR [Suspect]
     Indication: ASTHMA
     Dosage: 375 MG, Q2W
     Route: 058
     Dates: start: 20071220
  6. XOLAIR [Suspect]
     Dosage: 225 MG, Q2W
     Route: 058
     Dates: start: 20091123
  7. ADVAIR DISKUS 100/50 [Concomitant]
     Indication: PRODUCT USED FOR UNKNOWN INDICATION
     Dosage: 1 PUFF, BID, DOSE=1 PUFF, DAILY DOSE=2 PUFF
  8. PREDNISONE TAB [Concomitant]
     Indication: PRODUCT USED FOR UNKNOWN INDICATION
     Dosage: 10 MG, Q2D

REACTIONS (5)
  - NASOPHARYNGITIS [None]
  - PRODUCTIVE COUGH [None]
  - OXYGEN SATURATION DECREASED [None]
  - WHEEZING [None]
  - PULMONARY CONGESTION [None]
